FAERS Safety Report 5073961-8 (Version None)
Quarter: 2006Q3

REPORT INFORMATION
  Report Type: 
  Country: None (occurrence: None)
  Receive Date: 20060808
  Receipt Date: 20060511
  Transmission Date: 20061208
  Serious: No
  Sender: FDA-Public Use
  Company Number: US-AMGEN-US179335

PATIENT
  Sex: Female
  Weight: 49.5 kg

DRUGS (6)
  1. EPOGEN [Suspect]
     Indication: DIALYSIS
     Route: 042
  2. PHOSLO [Concomitant]
  3. CARDIZEM [Concomitant]
  4. VITAMINS [Concomitant]
  5. FOLIC ACID [Concomitant]
  6. VENOFER [Concomitant]
     Route: 042

REACTIONS (2)
  - CARDIAC FAILURE CONGESTIVE [None]
  - THERAPEUTIC RESPONSE DECREASED [None]
